FAERS Safety Report 13109530 (Version 5)
Quarter: 2017Q3

REPORT INFORMATION
  Report Type: Spontaneous
  Country: US (occurrence: US)
  Receive Date: 20170112
  Receipt Date: 20170801
  Transmission Date: 20171127
  Serious: Yes (Hospitalization)
  Sender: FDA-Public Use
  Company Number: US-SA-2017SA004273

PATIENT
  Age: 59 Year
  Sex: Male

DRUGS (1)
  1. FABRAZYME [Suspect]
     Active Substance: AGALSIDASE BETA
     Indication: FABRY^S DISEASE
     Route: 041
     Dates: start: 20110217

REACTIONS (5)
  - Malaise [Unknown]
  - Hospitalisation [Unknown]
  - Wound [Unknown]
  - Wound secretion [Unknown]
  - Confusional state [Unknown]

NARRATIVE: CASE EVENT DATE: 20170103
